FAERS Safety Report 11141039 (Version 4)
Quarter: 2015Q3

REPORT INFORMATION
  Report Type: Report from Study
  Country: HU (occurrence: HU)
  Receive Date: 20150527
  Receipt Date: 20150715
  Transmission Date: 20151125
  Serious: Yes (Hospitalization, Other)
  Sender: FDA-Public Use
  Company Number: HU-AMGEN-HUNNI2015031831

PATIENT
  Age: 64 Year
  Sex: Male
  Weight: 103 kg

DRUGS (13)
  1. ETANERCEPT [Suspect]
     Active Substance: ETANERCEPT
     Indication: PSORIASIS
     Dosage: 50 MG, WEEKLY
     Route: 065
     Dates: start: 20141203, end: 2015
  2. FUROSEMID                          /00032601/ [Concomitant]
     Active Substance: FUROSEMIDE
     Indication: PROSTATITIS
     Dosage: UNK
     Route: 048
  3. NEBIVOLOL. [Concomitant]
     Active Substance: NEBIVOLOL
     Indication: HYPERTENSION
     Dosage: UNK
     Route: 048
  4. PROSTAMOL UNO [Concomitant]
     Indication: PROSTATITIS
     Dosage: UNK
     Route: 048
  5. BETAGEN                            /01317701/ [Concomitant]
     Indication: HYPERTENSION
     Dosage: UNK
     Route: 048
  6. XETER [Concomitant]
     Indication: HYPERLIPIDAEMIA
     Dosage: UNK
     Route: 048
  7. ASPIRIN PROTECT [Concomitant]
     Active Substance: ASPIRIN
     Indication: HYPERTENSION
     Dosage: UNK
     Route: 048
  8. NOOTROPIL [Concomitant]
     Active Substance: PIRACETAM
     Indication: HYPERTENSION
     Dosage: UNK
     Route: 048
  9. FENOBRAT [Concomitant]
     Indication: HYPERTENSION
     Dosage: UNK
     Route: 048
  10. VALSARTAN. [Concomitant]
     Active Substance: VALSARTAN
     Indication: HYPERTENSION
     Dosage: UNK
     Route: 048
  11. THIOGAMMA [Concomitant]
     Indication: DIABETES MELLITUS
     Dosage: UNK
     Route: 048
  12. AMLODIPINE [Concomitant]
     Active Substance: AMLODIPINE BESYLATE
     Indication: HYPERLIPIDAEMIA
     Dosage: UNK
     Route: 048
  13. GABAGAMMA [Concomitant]
     Indication: PSORIASIS
     Dosage: UNK
     Route: 048

REACTIONS (2)
  - Squamous cell carcinoma [Not Recovered/Not Resolved]
  - Cough [Not Recovered/Not Resolved]

NARRATIVE: CASE EVENT DATE: 20150310
